FAERS Safety Report 12289487 (Version 1)
Quarter: 2016Q2

REPORT INFORMATION
  Report Type: Spontaneous
  Country: US (occurrence: None)
  Receive Date: 20160420
  Receipt Date: 20160420
  Transmission Date: 20160815
  Serious: Yes (Hospitalization)
  Sender: FDA-Public Use
  Company Number: None

PATIENT
  Sex: Female

DRUGS (8)
  1. TEKTURNA [Concomitant]
     Active Substance: ALISKIREN HEMIFUMARATE
  2. ZETIA [Concomitant]
     Active Substance: EZETIMIBE
  3. FUROSEMIDE. [Concomitant]
     Active Substance: FUROSEMIDE
  4. IMATINIB 100 MG NOVARTIS [Suspect]
     Active Substance: IMATINIB MESYLATE
     Indication: CHRONIC MYELOID LEUKAEMIA
     Route: 048
     Dates: start: 20120516
  5. JANUVIA [Concomitant]
     Active Substance: SITAGLIPTIN PHOSPHATE
  6. TRAMADOL. [Concomitant]
     Active Substance: TRAMADOL
  7. MELOXICAM. [Concomitant]
     Active Substance: MELOXICAM
  8. BENZONATATE. [Concomitant]
     Active Substance: BENZONATATE

REACTIONS (1)
  - Complication associated with device [None]

NARRATIVE: CASE EVENT DATE: 2016
